FAERS Safety Report 7940265-2 (Version None)
Quarter: 2011Q4

REPORT INFORMATION
  Report Type: 
  Country: None (occurrence: None)
  Receive Date: 20111126
  Receipt Date: 20110923
  Transmission Date: 20120403
  Serious: No
  Sender: FDA-Public Use
  Company Number: US-BAYER-2011-091747

PATIENT
  Sex: Male

DRUGS (10)
  1. GLYBURIDE [Concomitant]
  2. LOVASTATIN [Concomitant]
  3. NITRIC OXIDE [Concomitant]
  4. FISH OIL [Concomitant]
  5. ALBUTEROL [Concomitant]
  6. INSULIN [Concomitant]
  7. MULTI-VITAMINS [Concomitant]
  8. ALEVE (CAPLET) [Suspect]
     Indication: BACK PAIN
     Dosage: 2 DF, QD
  9. METFORMIN HCL [Concomitant]
  10. DIURETICS [Concomitant]

REACTIONS (1)
  - BACK PAIN [None]
